FAERS Safety Report 16264779 (Version 1)
Quarter: 2019Q2

REPORT INFORMATION
  Report Type: Spontaneous
  Country: FR (occurrence: FR)
  Receive Date: 20190502
  Receipt Date: 20190502
  Transmission Date: 20190711
  Serious: Yes (Death)
  Sender: FDA-Public Use
  Company Number: FR-PROVELL PHARMACEUTICALS-2066533

PATIENT
  Age: 99 Year
  Sex: Female
  Weight: 41 kg

DRUGS (9)
  1. AMLODIPINE [Suspect]
     Active Substance: AMLODIPINE BESYLATE
     Route: 048
     Dates: start: 20131212
  2. EUTHYROX [Suspect]
     Active Substance: LEVOTHYROXINE SODIUM
     Indication: HYPOTHYROIDISM
     Route: 048
     Dates: start: 20180201
  3. DIFFU K [Suspect]
     Active Substance: POTASSIUM CHLORIDE
     Route: 048
     Dates: start: 20190401
  4. DUPHALAC [Suspect]
     Active Substance: LACTULOSE
     Route: 048
     Dates: start: 20181011
  5. PANTOPRAZOLE MYLAN [Suspect]
     Active Substance: PANTOPRAZOLE SODIUM
     Route: 048
     Dates: start: 20150512
  6. FUROSEMIDE RENAUDIN [Suspect]
     Active Substance: FUROSEMIDE
     Route: 058
     Dates: start: 20190331
  7. NORMACOL LAVEMENT(FLEET) [Suspect]
     Active Substance: SODIUM PHOSPHATE, DIBASIC\SODIUM PHOSPHATE, MONOBASIC
     Route: 054
     Dates: start: 20190402
  8. GAVISCON [Suspect]
     Active Substance: ALUMINUM HYDROXIDE\MAGNESIUM CARBONATE
     Route: 048
     Dates: start: 20140108
  9. MORPHINE RENAUDIN [Suspect]
     Active Substance: MORPHINE
     Route: 058
     Dates: start: 20190330

REACTIONS (3)
  - Product selection error [Fatal]
  - Incorrect dose administered [Fatal]
  - Sudden death [Fatal]

NARRATIVE: CASE EVENT DATE: 20190403
